FAERS Safety Report 8535000-3 (Version None)
Quarter: 2012Q3

REPORT INFORMATION
  Report Type: 
  Country: None (occurrence: None)
  Receive Date: 20120724
  Receipt Date: 20120718
  Transmission Date: 20120928
  Serious: Yes (Other)
  Sender: FDA-Public Use
  Company Number: US-PFIZER INC-2012173955

PATIENT
  Sex: Female
  Weight: 56.689 kg

DRUGS (7)
  1. PANTOPRAZOLE [Concomitant]
     Dosage: 40 MG, 1X/DAY
  2. LOSARTAN [Concomitant]
     Dosage: UNK
  3. LYRICA [Suspect]
     Indication: NEUROPATHY PERIPHERAL
     Dosage: 50 MG, 3X/DAY
     Route: 048
     Dates: start: 20120717, end: 20120717
  4. FUROSEMIDE [Concomitant]
     Dosage: 40 MG, 1X/DAY
  5. POTASSIUM [Concomitant]
     Dosage: 50 MG, 2X/DAY
  6. TRAMADOL [Concomitant]
     Indication: PAIN
     Dosage: 50 MG, AS NEEDED
  7. DILTIAZEM [Concomitant]
     Dosage: 240 MG, 1X/DAY

REACTIONS (4)
  - TREMOR [None]
  - GAIT DISTURBANCE [None]
  - VISION BLURRED [None]
  - DIZZINESS [None]
